FAERS Safety Report 10091299 (Version 3)
Quarter: 2014Q2

REPORT INFORMATION
  Report Type: Report from Study
  Country: RO (occurrence: RO)
  Receive Date: 20140421
  Receipt Date: 20140508
  Transmission Date: 20141212
  Serious: Yes (Other)
  Sender: FDA-Public Use
  Company Number: RO-009507513-1404ROM011127

PATIENT
  Sex: 0

DRUGS (3)
  1. RIBAVIRIN [Suspect]
     Indication: HEPATITIS C
     Dosage: UNK
     Route: 065
  2. BOCEPREVIR [Suspect]
     Indication: HEPATITIS C
     Route: 065
  3. PEGINTERFERON ALFA-2A [Suspect]
     Indication: HEPATITIS C
     Route: 065

REACTIONS (5)
  - Hepatic failure [Unknown]
  - Extrasystoles [Unknown]
  - Dysgeusia [Unknown]
  - Rash [Unknown]
  - Anaemia [Unknown]
